FAERS Safety Report 8120346-3 (Version None)
Quarter: 2012Q1

REPORT INFORMATION
  Report Type: 
  Country: None (occurrence: None)
  Receive Date: 20120207
  Receipt Date: 20120201
  Transmission Date: 20120608
  Serious: Yes (Other)
  Sender: FDA-Public Use
  Company Number: US-GLAXOSMITHKLINE-A0964210A

PATIENT
  Age: 29 Year
  Sex: Female

DRUGS (2)
  1. ACYCLOVIR [Suspect]
     Indication: IMMUNOSUPPRESSANT DRUG THERAPY
  2. VALACYCLOVIR [Suspect]
     Indication: IMMUNOSUPPRESSANT DRUG THERAPY
     Dosage: 500MG PER DAY
     Route: 048
     Dates: start: 20090101, end: 20090101

REACTIONS (13)
  - NAUSEA [None]
  - INSOMNIA [None]
  - APHASIA [None]
  - HEADACHE [None]
  - FEELING ABNORMAL [None]
  - FACIAL PAIN [None]
  - NERVOUS SYSTEM DISORDER [None]
  - ATAXIA [None]
  - DYSKINESIA [None]
  - ABASIA [None]
  - RESTLESS LEGS SYNDROME [None]
  - DIZZINESS [None]
  - CONFUSIONAL STATE [None]
